FAERS Safety Report 10852645 (Version 1)
Quarter: 2015Q1

REPORT INFORMATION
  Report Type: Spontaneous
  Country: US (occurrence: US)
  Receive Date: 20150222
  Receipt Date: 20150222
  Transmission Date: 20150721
  Serious: Yes (Other)
  Sender: FDA-Public Use
  Company Number: US-ALLERGAN-1420721US

PATIENT
  Sex: Male

DRUGS (1)
  1. BOTOX [Suspect]
     Active Substance: ONABOTULINUMTOXINA
     Indication: MIGRAINE
     Dosage: UNK, SINGLE
     Dates: start: 201409, end: 201409

REACTIONS (6)
  - Oropharyngeal discomfort [Unknown]
  - Dyspnoea [Unknown]
  - Ear pruritus [Unknown]
  - Pruritus [Unknown]
  - Swelling face [Not Recovered/Not Resolved]
  - Nasal pruritus [Unknown]

NARRATIVE: CASE EVENT DATE: 20140923
